FAERS Safety Report 17199721 (Version 2)
Quarter: 2020Q1

REPORT INFORMATION
  Report Type: Spontaneous
  Country: MX (occurrence: MX)
  Receive Date: 20191226
  Receipt Date: 20200110
  Transmission Date: 20200409
  Serious: Yes (Other)
  Sender: FDA-Public Use
  Company Number: MX-US-PROVELL PHARMACEUTICALS LLC-9137003

PATIENT
  Age: 42 Year
  Sex: Female

DRUGS (1)
  1. LEVOTHYROXINE. [Suspect]
     Active Substance: LEVOTHYROXINE
     Indication: HYPOTHYROIDISM
     Dates: start: 200707

REACTIONS (10)
  - Ill-defined disorder [Unknown]
  - Condition aggravated [Recovered/Resolved]
  - Alopecia [Unknown]
  - Asthenia [Unknown]
  - Arthralgia [Unknown]
  - Hypothyroidism [Recovered/Resolved]
  - Insomnia [Unknown]
  - Weight increased [Unknown]
  - Headache [Unknown]
  - Dry skin [Unknown]
